FAERS Safety Report 8245878-9 (Version None)
Quarter: 2012Q1

REPORT INFORMATION
  Report Type: 
  Country: None (occurrence: None)
  Receive Date: 20120328
  Receipt Date: 20120328
  Transmission Date: 20120608
  Serious: No
  Sender: FDA-Public Use
  Company Number: None

PATIENT
  Sex: Female

DRUGS (2)
  1. MIRENA [Suspect]
     Dates: start: 20110224, end: 20111216
  2. PLAN B [Suspect]
     Dates: start: 20120227

REACTIONS (4)
  - LOSS OF CONSCIOUSNESS [None]
  - ANAPHYLACTIC REACTION [None]
  - ASTHMA [None]
  - DRUG INEFFECTIVE [None]
